FAERS Safety Report 16175163 (Version 1)
Quarter: 2019Q2

REPORT INFORMATION
  Report Type: Spontaneous
  Country: US (occurrence: TJ)
  Receive Date: 20190409
  Receipt Date: 20190409
  Transmission Date: 20190711
  Serious: Yes (Other)
  Sender: FDA-Public Use
  Company Number: TJ-STI PHARMA LLC-2065561

PATIENT
  Age: 9 Year
  Sex: Male
  Weight: 26 kg

DRUGS (5)
  1. DELAMINID [Suspect]
     Active Substance: DELAMANID
     Dates: start: 20181024, end: 20190311
  2. ETHAMBUTOL HYDROCHLORIDE. [Suspect]
     Active Substance: ETHAMBUTOL HYDROCHLORIDE
     Indication: TUBERCULOSIS
     Dates: start: 20181024, end: 20190311
  3. PYRAZINAMIDE. [Suspect]
     Active Substance: PYRAZINAMIDE
     Dates: start: 20181024, end: 20190311
  4. FERROUS SULFATE. [Concomitant]
     Active Substance: FERROUS SULFATE
  5. MULTIPLE VITAMINS (ASCORBIC ACID, ERGOCALCIFEROL, FOLIC ACID, RETINOL, [Concomitant]

REACTIONS (4)
  - Product use issue [Unknown]
  - Underdose [Unknown]
  - Haemoglobin decreased [Unknown]
  - Seizure [Recovering/Resolving]

NARRATIVE: CASE EVENT DATE: 20181024
